FAERS Safety Report 12166650 (Version 3)
Quarter: 2016Q2

REPORT INFORMATION
  Report Type: Report from Study
  Country: US (occurrence: US)
  Receive Date: 20160310
  Receipt Date: 20160527
  Transmission Date: 20160815
  Serious: Yes (Life-Threatening, Hospitalization, Disabling)
  Sender: FDA-Public Use
  Company Number: PHEH2016US005586

PATIENT
  Age: 66 Year
  Sex: Female
  Weight: 87.53 kg

DRUGS (1)
  1. SANDIMMUNE [Suspect]
     Active Substance: CYCLOSPORINE
     Indication: GLOMERULONEPHRITIS MEMBRANOUS
     Dosage: 200 MG, QD
     Route: 048
     Dates: start: 201511, end: 201602

REACTIONS (4)
  - Hyperkalaemia [Recovered/Resolved]
  - Product use issue [Unknown]
  - Acute kidney injury [Recovering/Resolving]
  - Generalised oedema [Recovered/Resolved]

NARRATIVE: CASE EVENT DATE: 20160217
